FAERS Safety Report 9699279 (Version 1)
Quarter: 2013Q4

REPORT INFORMATION
  Report Type: Spontaneous
  Country: US (occurrence: US)
  Receive Date: 20131120
  Receipt Date: 20131120
  Transmission Date: 20140711
  Serious: No
  Sender: FDA-Public Use
  Company Number: US-GILEAD-2008-0015318

PATIENT
  Sex: Male
  Weight: 99.79 kg

DRUGS (8)
  1. LETAIRIS [Suspect]
     Indication: PULMONARY ARTERIAL HYPERTENSION
     Route: 048
     Dates: start: 20071220, end: 20080207
  2. FLOLAN DILVENT [Concomitant]
     Route: 042
  3. FLOLAN [Concomitant]
     Route: 042
  4. LASIX [Concomitant]
     Route: 048
  5. LANOXIN [Concomitant]
     Route: 048
  6. PAXIL [Concomitant]
     Route: 048
  7. OXYGEN [Concomitant]
     Dosage: UD
     Route: 055
  8. POTASSIUM [Concomitant]
     Route: 048

REACTIONS (1)
  - Fluid retention [Unknown]
